FAERS Safety Report 18112108 (Version 3)
Quarter: 2021Q2

REPORT INFORMATION
  Report Type: Spontaneous
  Country: US (occurrence: US)
  Receive Date: 20200805
  Receipt Date: 20210622
  Transmission Date: 20210717
  Serious: Yes (Other)
  Sender: FDA-Public Use
  Company Number: US-GILEAD-2020-0487684

PATIENT
  Sex: Male
  Weight: 48.07 kg

DRUGS (28)
  1. BACTRIM [Concomitant]
     Active Substance: SULFAMETHOXAZOLE\TRIMETHOPRIM
  2. EZETIM [Concomitant]
     Active Substance: EZETIMIBE
  3. SUMATRIPTAN. [Concomitant]
     Active Substance: SUMATRIPTAN
  4. OFLOXACIN. [Concomitant]
     Active Substance: OFLOXACIN
  5. ACYCLOVIR ALPHARMA [ACICLOVIR SODIUM] [Concomitant]
     Active Substance: ACYCLOVIR
  6. CARVEDILOL. [Concomitant]
     Active Substance: CARVEDILOL
  7. PENICILLIN B [Concomitant]
     Active Substance: PHENETICILLIN
  8. PREZISTA [Concomitant]
     Active Substance: DARUNAVIR ETHANOLATE
  9. FLUZONE [FLUCONAZOLE] [Concomitant]
     Active Substance: FLUCONAZOLE
  10. REYATAZ [Suspect]
     Active Substance: ATAZANAVIR SULFATE
     Indication: PRODUCT USED FOR UNKNOWN INDICATION
     Route: 065
  11. ISENTRESS [Concomitant]
     Active Substance: RALTEGRAVIR POTASSIUM
  12. CLONAZEPAM. [Concomitant]
     Active Substance: CLONAZEPAM
  13. TRAZODONE [Concomitant]
     Active Substance: TRAZODONE HYDROCHLORIDE
  14. ERYTHROMYCIN. [Concomitant]
     Active Substance: ERYTHROMYCIN
  15. TRUVADA [Suspect]
     Active Substance: EMTRICITABINE\TENOFOVIR DISOPROXIL FUMARATE
     Indication: HIV INFECTION
     Dosage: UNK
     Route: 048
  16. IBUPROFEN. [Concomitant]
     Active Substance: IBUPROFEN
  17. ZIAGEN [Concomitant]
     Active Substance: ABACAVIR SULFATE
  18. VIREAD [Suspect]
     Active Substance: TENOFOVIR DISOPROXIL FUMARATE
     Indication: HIV INFECTION
     Route: 048
  19. TRUVADA [Suspect]
     Active Substance: EMTRICITABINE\TENOFOVIR DISOPROXIL FUMARATE
     Dosage: UNK
     Route: 065
     Dates: start: 2004, end: 2006
  20. MAALOX ANTACID [Concomitant]
     Active Substance: ALUMINUM HYDROXIDE\DIMETHICONE\MAGNESIUM HYDROXIDE
  21. CRESTOR [Concomitant]
     Active Substance: ROSUVASTATIN CALCIUM
  22. PREDNISOLONE. [Concomitant]
     Active Substance: PREDNISOLONE
  23. NORVIR [Concomitant]
     Active Substance: RITONAVIR
  24. LAMIVUDINE. [Concomitant]
     Active Substance: LAMIVUDINE
  25. CYCLOBENZAPRINE. [Concomitant]
     Active Substance: CYCLOBENZAPRINE
  26. FLOMAX [Concomitant]
     Active Substance: TAMSULOSIN HYDROCHLORIDE
  27. ZERIT [Concomitant]
     Active Substance: STAVUDINE
  28. TOBRAMYCIN DEXA OPHTH [Concomitant]

REACTIONS (14)
  - Multiple fractures [Not Recovered/Not Resolved]
  - Hypovitaminosis [Unknown]
  - Hip arthroplasty [Not Recovered/Not Resolved]
  - Bone density decreased [Unknown]
  - Tooth loss [Unknown]
  - Pain [Unknown]
  - Nephrocalcinosis [Unknown]
  - Osteonecrosis [Unknown]
  - Hip fracture [Unknown]
  - Bone loss [Unknown]
  - Visual impairment [Unknown]
  - Emotional distress [Unknown]
  - Chronic kidney disease [Unknown]
  - Fanconi syndrome acquired [Not Recovered/Not Resolved]

NARRATIVE: CASE EVENT DATE: 2005
